FAERS Safety Report 4456030-7 (Version None)
Quarter: 2004Q3

REPORT INFORMATION
  Report Type: 
  Country: None (occurrence: None)
  Receive Date: 20040922
  Receipt Date: 20040915
  Transmission Date: 20050211
  Serious: Yes (Other)
  Sender: FDA-Public Use
  Company Number: PHBS2004JP12298

PATIENT
  Age: 37 Year
  Sex: Female

DRUGS (1)
  1. CYCLOSPORINE [Suspect]
     Indication: APLASTIC ANAEMIA
     Dosage: 250 MG/D
     Route: 065
     Dates: start: 20031020

REACTIONS (2)
  - ENDOCRINE DISORDER [None]
  - NEUROTOXICITY [None]
